FAERS Safety Report 4507693-9 (Version None)
Quarter: 2004Q4

REPORT INFORMATION
  Report Type: 
  Country: None (occurrence: None)
  Receive Date: 20041123
  Receipt Date: 20031204
  Transmission Date: 20050328
  Serious: Yes (Hospitalization)
  Sender: FDA-Public Use
  Company Number: 200311469JP

PATIENT
  Age: 73 Year
  Sex: Female
  Weight: 52 kg

DRUGS (13)
  1. ARAVA [Suspect]
     Indication: RHEUMATOID ARTHRITIS
     Route: 048
     Dates: start: 20031104, end: 20040203
  2. BEZATOL - SLOW RELEASE [Suspect]
     Indication: HYPERLIPIDAEMIA
     Route: 048
     Dates: start: 20030930, end: 20040328
  3. IMURAN [Concomitant]
     Indication: IMMUNOSUPPRESSION
     Route: 048
     Dates: start: 20020115, end: 20031203
  4. PREDONINE [Concomitant]
     Indication: ANTIINFLAMMATORY THERAPY
     Route: 048
  5. LANIRAPID [Concomitant]
     Indication: ARRHYTHMIA
     Route: 048
  6. DICLOFENAC SODIUM SR [Concomitant]
     Indication: ANALGESIC EFFECT
     Route: 048
  7. CYTOTEC [Concomitant]
     Indication: ULCER
     Route: 048
     Dates: start: 20010410
  8. ORCL [Concomitant]
     Indication: RHEUMATOID ARTHRITIS
     Route: 048
     Dates: end: 20040328
  9. SELBEX [Concomitant]
     Indication: PROPHYLAXIS AGAINST GASTROINTESTINAL ULCER
     Route: 048
  10. CYANOCOBALAMIN [Concomitant]
     Indication: NERVOUS SYSTEM DISORDER
     Route: 048
  11. CYANOCOBALAMIN [Concomitant]
     Indication: PROPHYLAXIS
     Route: 048
  12. FUROSEMIDE [Concomitant]
     Indication: CARDIAC FAILURE
     Route: 048
     Dates: start: 20030401
  13. INFLUENZA VACCINE [Concomitant]
     Indication: PROPHYLAXIS

REACTIONS (5)
  - ARTHRITIS [None]
  - BRONCHOPNEUMONIA [None]
  - DEHYDRATION [None]
  - INTERSTITIAL LUNG DISEASE [None]
  - RHABDOMYOLYSIS [None]
